FAERS Safety Report 20846565 (Version 1)
Quarter: 2022Q2

REPORT INFORMATION
  Report Type: Spontaneous
  Country: US (occurrence: US)
  Receive Date: 20220518
  Receipt Date: 20220518
  Transmission Date: 20220721
  Serious: Yes (Hospitalization)
  Sender: FDA-Public Use
  Company Number: US-ABBVIE-22K-163-4400092-00

PATIENT
  Sex: Male

DRUGS (2)
  1. HUMIRA [Suspect]
     Active Substance: ADALIMUMAB
     Indication: Psoriasis
     Route: 058
  2. SKYRIZI [Suspect]
     Active Substance: RISANKIZUMAB-RZAA
     Indication: Product used for unknown indication
     Route: 058

REACTIONS (8)
  - Hospitalisation [Unknown]
  - White blood cell disorder [Unknown]
  - Biopsy bone marrow [Unknown]
  - Blood disorder [Unknown]
  - Haemoglobin decreased [Unknown]
  - Contusion [Unknown]
  - Red blood cell count decreased [Unknown]
  - Platelet count decreased [Unknown]
